FAERS Safety Report 26089140 (Version 2)
Quarter: 2025Q4

REPORT INFORMATION
  Report Type: Spontaneous
  Country: EU (occurrence: EU)
  Receive Date: 20251125
  Receipt Date: 20251209
  Transmission Date: 20260118
  Serious: Yes (Other)
  Sender: PFIZER
  Company Number: None

PATIENT
  Age: 29 Year
  Sex: Female
  Weight: 70.3 kg

DRUGS (14)
  1. LORAZEPAM [Suspect]
     Active Substance: LORAZEPAM
     Indication: Restlessness
     Dosage: 1 DF, AS NEEDED
     Route: 048
     Dates: start: 20250816
  2. CLOZAPINE [Suspect]
     Active Substance: CLOZAPINE
     Dosage: 2 DF, 1X/DAY (IN THE EVENINGS;1ST ADMINISTRATION PLANNED ON 13OCT2025)
     Route: 048
  3. CLOZAPINE [Suspect]
     Active Substance: CLOZAPINE
     Dosage: 175 MG, 1X/DAY (0-0-1)
     Route: 048
  4. AMISULPRIDE [Suspect]
     Active Substance: AMISULPRIDE
     Dosage: 1.5 DF, 1X/DAY; (1.5-0-0, FIRST ADMINISTRATION PLANNED 31OCT2025)
     Route: 048
  5. BIPERIDEN [Suspect]
     Active Substance: BIPERIDEN
     Dosage: 1 DF, 1X/DAY (1-0-0, 1ST ADMINISTRATION PLANNED 24JUN2025)
     Route: 048
  6. BIPERIDEN [Suspect]
     Active Substance: BIPERIDEN
     Indication: Extrapyramidal disorder
     Dosage: 1 DF, AS NEEDED
     Route: 048
     Dates: start: 20250625
  7. LACTULOSE [Suspect]
     Active Substance: LACTULOSE
     Indication: Constipation
     Dosage: 10 ML (PER INTAKE)
     Route: 048
     Dates: start: 20250923
  8. LACTULOSE [Suspect]
     Active Substance: LACTULOSE
     Dosage: 10 ML, 3X/DAY (1ST ADMINISTRATION PLANNED 28OCT2025; 10-10-10 ML)
     Route: 048
  9. POLYETHYLENE GLYCOLS [Suspect]
     Active Substance: POLYETHYLENE GLYCOLS
     Dosage: 1 DF, 3X/DAY (MORNING/NOON/EVENING 1 SACHET EACH; 1ST ADMINISTRATION PLANNED ON 22SEP2025, 18:00 HR)
     Route: 048
  10. SERTRALINE HYDROCHLORIDE [Suspect]
     Active Substance: SERTRALINE HYDROCHLORIDE
     Dosage: 1 DF, 1X/DAY (IN THE MORNING; 1ST ADMINISTRATION PLANNED ON 25SEP2025)
     Route: 048
  11. DIAZEPAM [Suspect]
     Active Substance: DIAZEPAM
     Indication: Restlessness
     Dosage: 5 MG, AS NEEDED
     Route: 048
     Dates: start: 20250610
  12. HALOPERIDOL [Suspect]
     Active Substance: HALOPERIDOL
     Indication: Restlessness
     Dosage: 5 MG, AS NEEDED (SOLUTION)
     Route: 048
     Dates: start: 20250609
  13. IBUPROFEN [Suspect]
     Active Substance: IBUPROFEN
     Indication: Pain
     Dosage: 1 DF, AS NEEDED
     Route: 048
     Dates: start: 20250804
  14. PROMETHAZINE [Suspect]
     Active Substance: PROMETHAZINE HYDROCHLORIDE
     Indication: Restlessness
     Dosage: 1 DF, AS NEEDED
     Route: 048
     Dates: start: 20250608

REACTIONS (37)
  - Exophthalmos [Unknown]
  - Syncope [Unknown]
  - Angina pectoris [Unknown]
  - Circulatory collapse [Unknown]
  - Epilepsy [Unknown]
  - Seizure [Unknown]
  - Loss of consciousness [Unknown]
  - Fear of death [Unknown]
  - Foaming at mouth [Unknown]
  - Human bite [Unknown]
  - Skin discolouration [Unknown]
  - Screaming [Unknown]
  - Speech disorder [Unknown]
  - Pyrexia [Unknown]
  - Weight increased [Unknown]
  - Amenorrhoea [Unknown]
  - Uterine pain [Unknown]
  - Muscle twitching [Unknown]
  - Motor dysfunction [Unknown]
  - Dysphemia [Unknown]
  - Memory impairment [Unknown]
  - Posture abnormal [Unknown]
  - Stress [Unknown]
  - Tongue biting [Unknown]
  - Hyperacusis [Unknown]
  - Abdominal pain upper [Unknown]
  - Abdominal pain [Unknown]
  - Constipation [Unknown]
  - Anxiety [Unknown]
  - Alopecia [Unknown]
  - Nausea [Unknown]
  - Dizziness [Unknown]
  - Headache [Unknown]
  - Confusional state [Unknown]
  - Amnesia [Unknown]
  - Tremor [Unknown]
  - Circumstance or information capable of leading to medication error [Unknown]

NARRATIVE: CASE EVENT DATE: 20250101
